FAERS Safety Report 24874596 (Version 1)
Quarter: 2025Q1

REPORT INFORMATION
  Report Type: Spontaneous
  Country: US (occurrence: US)
  Receive Date: 20250122
  Receipt Date: 20250122
  Transmission Date: 20250409
  Serious: No
  Sender: BAYER HEALTHCARE PHARMACEUTICALS INC.
  Company Number: US-BAYER-2025A008241

PATIENT
  Age: 52 Year
  Sex: Female

DRUGS (1)
  1. MIRENA [Suspect]
     Active Substance: LEVONORGESTREL
     Indication: Contraception
     Dosage: 20?G/DAY
     Route: 015
     Dates: start: 2019, end: 20230609

REACTIONS (17)
  - Headache [Not Recovered/Not Resolved]
  - Back pain [Not Recovered/Not Resolved]
  - Periarthritis [None]
  - Infection [None]
  - Illness [Not Recovered/Not Resolved]
  - Device dislocation [Recovered/Resolved]
  - Pelvic pain [Not Recovered/Not Resolved]
  - Dizziness [Not Recovered/Not Resolved]
  - Pollakiuria [Not Recovered/Not Resolved]
  - Eye movement disorder [Not Recovered/Not Resolved]
  - Abdominal pain lower [Not Recovered/Not Resolved]
  - Ocular icterus [None]
  - Abdominal distension [None]
  - Bedridden [None]
  - Crying [None]
  - Red blood cell count increased [None]
  - White blood cell count increased [None]

NARRATIVE: CASE EVENT DATE: 20190101
